FAERS Safety Report 5461094-8 (Version None)
Quarter: 2007Q3

REPORT INFORMATION
  Report Type: 
  Country: None (occurrence: None)
  Receive Date: 20070918
  Receipt Date: 20070918
  Transmission Date: 20080115
  Serious: Yes (Hospitalization)
  Sender: FDA-Public Use
  Company Number: None

PATIENT
  Sex: Female

DRUGS (5)
  1. CETUXIMAB [Suspect]
     Indication: PANCREATIC CARCINOMA
     Dosage: 380MG, 1520MG
     Dates: start: 20070815
  2. OXALIPLATIN [Suspect]
     Indication: PANCREATIC CARCINOMA
     Dosage: 152
     Dates: start: 20070816
  3. DILAUDID [Concomitant]
  4. NEXIUM [Concomitant]
  5. GEMCITABINE HCL [Suspect]

REACTIONS (1)
  - PYREXIA [None]
